FAERS Safety Report 9586311 (Version 2)
Quarter: 2014Q2

REPORT INFORMATION
  Report Type: Report from Study
  Country: JP (occurrence: JP)
  Receive Date: 20131003
  Receipt Date: 20140602
  Transmission Date: 20141212
  Serious: No
  Sender: FDA-Public Use
  Company Number: JP-009507513-1309JPN014018

PATIENT
  Age: 69 Year
  Sex: Female
  Weight: 52 kg

DRUGS (20)
  1. REBETOL [Suspect]
     Indication: CHRONIC HEPATITIS C
     Dosage: 600 MG/DAY,ONE CAPSULE IN THE MORNING, TWO CAPSULES IN THE EVENING, BID
     Route: 048
     Dates: start: 20091120, end: 20091213
  2. REBETOL [Suspect]
     Dosage: 200 MG, BID
     Route: 048
     Dates: start: 20091214, end: 20110411
  3. FERON [Suspect]
     Indication: CHRONIC HEPATITIS C
     Dosage: 6MILLION-BILLION UNIT, QD
     Route: 041
     Dates: start: 20091120, end: 20091204
  4. FERON [Suspect]
     Dosage: 6MILLION-BILLION UNIT, TIW
     Route: 041
     Dates: start: 20091207, end: 20100108
  5. FERON [Suspect]
     Dosage: 6 MILLION-BILLION UNIT, TIW
     Route: 042
     Dates: start: 20100112, end: 20110408
  6. NEO-MINOPHAGEN C [Concomitant]
     Indication: CHRONIC HEPATITIS C
     Dosage: 100 ML, TIW
     Route: 051
     Dates: start: 199902, end: 20091116
  7. URSO [Concomitant]
     Indication: CHRONIC HEPATITIS C
     Dosage: TOTAL DAILY DOSE: 600 MG, DIVIDED DOSE FREQUENCY UNKNOWN
     Route: 048
     Dates: end: 20091119
  8. NORVASC [Concomitant]
     Indication: HYPERTENSION
     Dosage: TOTAL DAILY DOSE: 2.5 MG, DIVIDED DOSE FREQUENCY UNKNOWN
     Route: 048
  9. DEPROMEL [Concomitant]
     Indication: DEPRESSION
     Dosage: TOTAL DAILY DOSE: 50 MG, DIVIDED DOSE FREQUENCY UNKNOWN
     Route: 048
  10. LENDORMIN [Concomitant]
     Indication: INSOMNIA
     Dosage: TOTAL DAILY DOSE 0.25 MG,DIVIDED DOSE FREQUENCY UNKNOWN
     Route: 048
  11. SOLANAX [Concomitant]
     Indication: DEPRESSION
     Dosage: 0.4 MG, PRN
     Route: 048
  12. SAYMOTIN S [Concomitant]
     Indication: HYPERTENSION
     Dosage: 150 UNDER 1000UNIT,DIVIDED DOSE FREQUENCY UNKNOWN
     Route: 048
  13. MUCOSTA [Concomitant]
     Indication: PROPHYLAXIS AGAINST GASTROINTESTINAL ULCER
     Dosage: TOTAL DAILY DOSE 300 MG, DIVIDED DOSE FREQUENCY UNKNOWN
     Route: 048
     Dates: start: 20091120, end: 20110410
  14. MUCOSTA [Concomitant]
     Dosage: TOTAL DAILY DOSE 300 MG, DIVIDED DOSE FREQUENCY UNKNOWN
     Route: 048
     Dates: start: 20110905, end: 20111011
  15. GASTER (FAMOTIDINE) [Concomitant]
     Indication: PROPHYLAXIS AGAINST GASTROINTESTINAL ULCER
     Dosage: TOTAL DAILY DOSE 40 MG, DIVIDED DOSE FREQUENCY UNKNOWN
     Route: 048
     Dates: start: 20091120, end: 20110408
  16. INTEBAN [Concomitant]
     Indication: PYREXIA
     Dosage: 25 MG, PRN
     Route: 054
     Dates: start: 20091120, end: 20091130
  17. LOXONIN [Concomitant]
     Indication: PYREXIA
     Dosage: 60 MG, PRN
     Route: 048
     Dates: start: 20091204, end: 20110408
  18. NAUZELIN [Concomitant]
     Indication: NAUSEA
     Dosage: TOTAL DAILY DOSE 60 MG, DIVIDED DOSE FREQUENCY UNKNOWN
     Route: 054
     Dates: start: 20091230, end: 20091230
  19. PRIMPERAN [Concomitant]
     Indication: NAUSEA
     Dosage: TOTAL DAILY DOSE 10 MG, DIVIDED DOSE FREQUENCY UNKNOW
     Route: 051
     Dates: start: 20100101, end: 20100101
  20. GANATON [Concomitant]
     Indication: DECREASED APPETITE
     Dosage: TOTAL DAILY DOSE 150 MG, DIVIDED DOSE FREQUENCY UNKNOWN
     Route: 048
     Dates: start: 20100104, end: 20110410

REACTIONS (8)
  - Proteinuria [Recovered/Resolved]
  - Pyrexia [Recovered/Resolved]
  - Decreased appetite [Recovered/Resolved]
  - Nausea [Recovered/Resolved]
  - Platelet count decreased [Recovered/Resolved]
  - Haemoglobin decreased [Recovered/Resolved]
  - White blood cell count decreased [Recovered/Resolved]
  - Alopecia [Recovered/Resolved]
